FAERS Safety Report 10707558 (Version 3)
Quarter: 2016Q1

REPORT INFORMATION
  Report Type: Report from Study
  Country: US (occurrence: US)
  Receive Date: 20150113
  Receipt Date: 20160303
  Transmission Date: 20160525
  Serious: Yes (Hospitalization, Other)
  Sender: FDA-Public Use
  Company Number: US-SA-2015SA003073

PATIENT
  Age: 65 Year
  Sex: Female

DRUGS (1)
  1. AUBAGIO [Suspect]
     Active Substance: TERIFLUNOMIDE
     Indication: MULTIPLE SCLEROSIS
     Route: 048
     Dates: start: 20130921

REACTIONS (6)
  - Alopecia [Recovered/Resolved]
  - Shoulder arthroplasty [Unknown]
  - Condition aggravated [Unknown]
  - Muscular weakness [Unknown]
  - Multiple sclerosis [Unknown]
  - Asthenia [Unknown]

NARRATIVE: CASE EVENT DATE: 20141230
